FAERS Safety Report 6315611-6 (Version None)
Quarter: 2009Q3

REPORT INFORMATION
  Report Type: 
  Country: None (occurrence: None)
  Receive Date: 20090818
  Receipt Date: 20090629
  Transmission Date: 20100115
  Serious: No
  Sender: FDA-Public Use
  Company Number: 001024

PATIENT
  Sex: Female

DRUGS (5)
  1. VIMPAT [Suspect]
     Indication: PARTIAL SEIZURES
     Dosage: (100 MG BID ORAL)
     Route: 048
     Dates: start: 20090312
  2. KEPPRA [Suspect]
     Indication: EPILEPSY
     Dosage: (250 MG BID ORAL)
     Route: 048
  3. TEGRETOL [Suspect]
     Indication: EPILEPSY
     Dosage: (ORAL) ; (200 MG BID, DOSE REDUCED ORAL)
     Route: 048
     Dates: start: 20090311
  4. TEGRETOL [Suspect]
     Indication: EPILEPSY
     Dosage: (ORAL) ; (200 MG BID, DOSE REDUCED ORAL)
     Route: 048
     Dates: start: 20090312
  5. TOPAMAX [Suspect]
     Indication: EPILEPSY
     Dosage: (200 MG BID ORAL)
     Route: 048

REACTIONS (3)
  - CHEST X-RAY ABNORMAL [None]
  - DYSPNOEA [None]
  - HYPONATRAEMIA [None]
